FAERS Safety Report 23918940 (Version 3)
Quarter: 2025Q2

REPORT INFORMATION
  Report Type: Spontaneous
  Country: JP (occurrence: JP)
  Receive Date: 20240530
  Receipt Date: 20250530
  Transmission Date: 20250716
  Serious: Yes (Other)
  Sender: ASTELLAS
  Company Number: JP-ASTELLAS-2024JP003531

PATIENT
  Age: 4 Decade
  Sex: Male

DRUGS (4)
  1. XOSPATA [Suspect]
     Active Substance: GILTERITINIB
     Indication: Acute myeloid leukaemia
     Route: 065
  2. IDAMYCIN [Concomitant]
     Active Substance: IDARUBICIN HYDROCHLORIDE
     Indication: Product used for unknown indication
     Route: 065
  3. CYTARABINE [Concomitant]
     Active Substance: CYTARABINE
     Indication: Product used for unknown indication
     Route: 065
  4. QUIZARTINIB [Concomitant]
     Active Substance: QUIZARTINIB
     Indication: Product used for unknown indication
     Route: 065

REACTIONS (2)
  - Engraft failure [Unknown]
  - Cerebral toxoplasmosis [Recovered/Resolved]
